FAERS Safety Report 5965368-3 (Version None)
Quarter: 2008Q4

REPORT INFORMATION
  Report Type: 
  Country: None (occurrence: None)
  Receive Date: 20081125
  Receipt Date: 20081120
  Transmission Date: 20090506
  Serious: Yes (Hospitalization)
  Sender: FDA-Public Use
  Company Number: SE-ASTRAZENECA-2008SE05293

PATIENT
  Age: 73 Year
  Sex: Male

DRUGS (5)
  1. METOPROLOL TARTRATE [Suspect]
     Indication: CARDIAC FAILURE
     Route: 048
     Dates: end: 20081024
  2. METOPROLOL TARTRATE [Suspect]
     Indication: OEDEMA DUE TO CARDIAC DISEASE
     Route: 048
     Dates: end: 20081024
  3. WARFARIN SODIUM [Concomitant]
     Route: 048
  4. FURIX [Concomitant]
     Route: 048
  5. DAONIL [Concomitant]
     Route: 048

REACTIONS (1)
  - ATRIAL FIBRILLATION [None]
